FAERS Safety Report 7054206-6 (Version None)
Quarter: 2010Q4

REPORT INFORMATION
  Report Type: 
  Country: None (occurrence: None)
  Receive Date: 20101014
  Receipt Date: 20101001
  Transmission Date: 20110411
  Serious: Yes (Hospitalization)
  Sender: FDA-Public Use
  Company Number: DAV-AE-MTX-10-012

PATIENT
  Age: 14 Year
  Sex: Male

DRUGS (2)
  1. METHOTREXATE [Suspect]
     Indication: T-CELL LYMPHOMA
     Dosage: 2.5MG
  2. GLUTAMINE [Concomitant]

REACTIONS (2)
  - DRUG LEVEL INCREASED [None]
  - NEPHROPATHY TOXIC [None]
